FAERS Safety Report 8821555 (Version 2)
Quarter: 2012Q4

REPORT INFORMATION
  Report Type: 
  Country: US (occurrence: US)
  Receive Date: 20121002
  Receipt Date: 20121205
  Transmission Date: 20130627
  Serious: Yes (Death, Hospitalization, Other)
  Sender: FDA-Public Use
  Company Number: US-009507513-1103USA00974

PATIENT

DRUGS (2)
  1. FOSAMAX [Suspect]
     Indication: OSTEOPOROSIS
     Dosage: UNK
     Route: 048
     Dates: start: 20000721, end: 20080202
  2. FOSAMAX [Suspect]
     Route: 048
     Dates: start: 200802

REACTIONS (26)
  - Femur fracture [Unknown]
  - Open reduction of fracture [Unknown]
  - Death [Fatal]
  - Breast cancer [Unknown]
  - Lung neoplasm malignant [Unknown]
  - Upper limb fracture [Unknown]
  - Fall [Unknown]
  - Osteopetrosis [Unknown]
  - Arthroscopy [Unknown]
  - Hip arthroplasty [Unknown]
  - Biopsy breast [Unknown]
  - Wrist fracture [Unknown]
  - Cardiac murmur [Unknown]
  - Sinusitis [Unknown]
  - Drug hypersensitivity [Unknown]
  - Contusion [Unknown]
  - Contusion [Unknown]
  - Contusion [Unknown]
  - Osteoarthritis [Unknown]
  - Meniscus injury [Unknown]
  - Arthralgia [Unknown]
  - Arthralgia [Unknown]
  - Rotator cuff syndrome [Unknown]
  - Musculoskeletal pain [Unknown]
  - Osteoarthritis [Unknown]
  - Inappropriate schedule of drug administration [Unknown]
